FAERS Safety Report 10235645 (Version 2)
Quarter: 2014Q2

REPORT INFORMATION
  Report Type: Spontaneous
  Country: US (occurrence: US)
  Receive Date: 20140613
  Receipt Date: 20140618
  Transmission Date: 20141212
  Serious: Yes (Other)
  Sender: FDA-Public Use
  Company Number: CHPA2014US007996

PATIENT
  Age: 71 Year
  Sex: Female

DRUGS (1)
  1. VOLTAREN GEL [Suspect]
     Indication: OSTEOARTHRITIS
     Dosage: 2 G, 1 OR 2 TIMES A DAY
     Route: 061

REACTIONS (2)
  - Joint swelling [Not Recovered/Not Resolved]
  - Underdose [Unknown]
